FAERS Safety Report 9316439 (Version 2)
Quarter: 2013Q2

REPORT INFORMATION
  Report Type: Spontaneous
  Country: JP (occurrence: JP)
  Receive Date: 20130530
  Receipt Date: 20130610
  Transmission Date: 20140414
  Serious: Yes (Death)
  Sender: FDA-Public Use
  Company Number: JP-JNJFOC-20130515627

PATIENT
  Age: 75 Year
  Sex: Female
  Weight: 48 kg

DRUGS (16)
  1. XARELTO [Suspect]
     Indication: CEREBROVASCULAR ACCIDENT PROPHYLAXIS
     Route: 048
     Dates: start: 20130408
  2. XARELTO [Suspect]
     Indication: CEREBROVASCULAR ACCIDENT PROPHYLAXIS
     Route: 048
     Dates: start: 201211, end: 201212
  3. XARELTO [Suspect]
     Indication: ATRIAL FIBRILLATION
     Route: 048
     Dates: start: 20130408
  4. XARELTO [Suspect]
     Indication: ATRIAL FIBRILLATION
     Route: 048
     Dates: start: 201211, end: 201212
  5. ARTIST [Concomitant]
     Route: 048
  6. URINORM [Concomitant]
     Route: 048
  7. LASIX [Concomitant]
     Route: 065
  8. LOXONIN [Concomitant]
     Route: 062
  9. TAKEPRON [Concomitant]
     Route: 065
  10. FERROMIA [Concomitant]
     Route: 048
  11. LIVALO [Concomitant]
     Route: 048
  12. AMARYL [Concomitant]
     Route: 048
  13. VILDAGLIPTIN [Concomitant]
     Route: 048
  14. NU-LOTAN [Concomitant]
     Route: 048
  15. ALDACTONE A [Concomitant]
     Route: 048
  16. WARFARIN [Concomitant]
     Route: 048
     Dates: start: 201212, end: 201304

REACTIONS (2)
  - Cerebral infarction [Fatal]
  - Epistaxis [Unknown]
